FAERS Safety Report 23265812 (Version 1)
Quarter: 2023Q4

REPORT INFORMATION
  Report Type: Spontaneous
  Country: US (occurrence: US)
  Receive Date: 20231206
  Receipt Date: 20231206
  Transmission Date: 20240110
  Serious: No
  Sender: FDA-Public Use
  Company Number: US-BIOGEN-2023BI01238804

PATIENT
  Sex: Female

DRUGS (4)
  1. TECFIDERA [Suspect]
     Active Substance: DIMETHYL FUMARATE
     Indication: Product used for unknown indication
     Route: 050
  2. PROMETHAZINE [Concomitant]
     Active Substance: PROMETHAZINE HYDROCHLORIDE
     Route: 050
  3. ONDANSETRON [Concomitant]
     Active Substance: ONDANSETRON
     Route: 050
  4. LEVONORGESTREL [Concomitant]
     Active Substance: LEVONORGESTREL
     Route: 050

REACTIONS (2)
  - Abdominal discomfort [Unknown]
  - Flushing [Unknown]
